FAERS Safety Report 7332630-1 (Version None)
Quarter: 2011Q1

REPORT INFORMATION
  Report Type: 
  Country: None (occurrence: None)
  Receive Date: 20110304
  Receipt Date: 20110218
  Transmission Date: 20110831
  Serious: Yes (Hospitalization)
  Sender: FDA-Public Use
  Company Number: NL-ELI_LILLY_AND_COMPANY-NL201101005287

PATIENT
  Sex: Female

DRUGS (3)
  1. HEPARIN [Suspect]
     Indication: NON-SMALL CELL LUNG CANCER
     Dosage: 0.8 ML,  1 X 1
     Route: 058
     Dates: start: 20101220
  2. PEMETREXED [Suspect]
     Indication: NON-SMALL CELL LUNG CANCER
     Dosage: UNK, ONCE EVERY 3 WEEKS
     Route: 042
     Dates: start: 20101220
  3. CISPLATIN [Suspect]
     Indication: NON-SMALL CELL LUNG CANCER
     Dosage: UNK, ONCE EVERY 3 WEEKS
     Route: 042
     Dates: start: 20101220

REACTIONS (1)
  - UPPER RESPIRATORY TRACT INFECTION [None]
